FAERS Safety Report 6754943-4 (Version None)
Quarter: 2010Q2

REPORT INFORMATION
  Report Type: 
  Country: None (occurrence: None)
  Receive Date: 20100602
  Receipt Date: 20100518
  Transmission Date: 20101027
  Serious: Yes (Other)
  Sender: FDA-Public Use
  Company Number: GB-ACCORD-005267

PATIENT
  Age: 66 Year
  Sex: Female
  Weight: 70 kg

DRUGS (4)
  1. SIMVASTATIN [Suspect]
     Indication: BLOOD CHOLESTEROL INCREASED
     Dosage: 40.00-MG-ORAL
     Route: 048
     Dates: start: 20100416, end: 20100428
  2. ADALAT LA(ADALAT LA) [Concomitant]
  3. ASPIRIN [Concomitant]
  4. BENDROFLUMETIAZIDE(BENDROFLUMETHIAZIDE) [Concomitant]

REACTIONS (4)
  - ABDOMINAL PAIN UPPER [None]
  - LIP ULCERATION [None]
  - MOUTH ULCERATION [None]
  - PRODUCT SUBSTITUTION ISSUE [None]
